FAERS Safety Report 4645259-0 (Version None)
Quarter: 2005Q2

REPORT INFORMATION
  Report Type: 
  Country: None (occurrence: None)
  Receive Date: 20050331
  Receipt Date: 20050124
  Transmission Date: 20051028
  Serious: No
  Sender: FDA-Public Use
  Company Number: 04P-163-0281049-00

PATIENT
  Age: 59 Year
  Sex: Female
  Weight: 74.8435 kg

DRUGS (12)
  1. HUMIRA [Suspect]
     Indication: RHEUMATOID ARTHRITIS
     Dosage: 40 MG, 1 IN 2 WK, SUBCUTANEOUS;  40 MG, 1 IN 2 WK, SUBCUTANEOUS
     Route: 058
     Dates: start: 20021201, end: 20030901
  2. HUMIRA [Suspect]
     Indication: RHEUMATOID ARTHRITIS
     Dosage: 40 MG, 1 IN 2 WK, SUBCUTANEOUS;  40 MG, 1 IN 2 WK, SUBCUTANEOUS
     Route: 058
     Dates: start: 20040401, end: 20041201
  3. MULTI-VITAMINS [Concomitant]
  4. SULINDAC [Concomitant]
  5. CAPTOPRIL [Concomitant]
  6. FUROSEMIDE [Concomitant]
  7. LEVOTHYROXINE SODIUM [Concomitant]
  8. METHOTREXATE [Concomitant]
  9. GEMFIBROZIL [Concomitant]
  10. RANITIDINE [Concomitant]
  11. POTASSIUM CHLORIDE [Concomitant]
  12. FOLINIC ACID [Concomitant]

REACTIONS (3)
  - BREAST CANCER [None]
  - DRUG INEFFECTIVE [None]
  - WEIGHT INCREASED [None]
